FAERS Safety Report 5306802-1 (Version None)
Quarter: 2007Q2

REPORT INFORMATION
  Report Type: 
  Country: None (occurrence: None)
  Receive Date: 20070423
  Receipt Date: 20070423
  Transmission Date: 20071010
  Serious: No
  Sender: FDA-Public Use
  Company Number: None

PATIENT
  Sex: Male
  Weight: 105 kg

DRUGS (4)
  1. VICODIN [Suspect]
     Indication: PAIN
     Dosage: 5/500 MG X 30 TABLETS ONCE (PO)
     Route: 048
  2. ARIPIPRAZOLE [Concomitant]
  3. SERTRALINE [Concomitant]
  4. NAPROXEN [Concomitant]

REACTIONS (3)
  - DRUG ABUSER [None]
  - SUICIDE ATTEMPT [None]
  - VOMITING [None]
